FAERS Safety Report 11208204 (Version 1)
Quarter: 2015Q2

REPORT INFORMATION
  Report Type: Spontaneous
  Country: CH (occurrence: CH)
  Receive Date: 20150622
  Receipt Date: 20150622
  Transmission Date: 20150821
  Serious: Yes (Hospitalization)
  Sender: FDA-Public Use
  Company Number: PHHY2015CH070107

PATIENT
  Age: 85 Year
  Sex: Female

DRUGS (6)
  1. XARELTO [Suspect]
     Active Substance: RIVAROXABAN
     Indication: ATRIAL FIBRILLATION
     Dosage: 20 MG, QD
     Route: 048
     Dates: start: 201502, end: 20150404
  2. ATORVASTATIN [Suspect]
     Active Substance: ATORVASTATIN
     Indication: PERIPHERAL VENOUS DISEASE
     Dosage: 80 MG, QD
     Route: 048
     Dates: start: 201502, end: 20150404
  3. BILOL COMP [Suspect]
     Active Substance: BISOPROLOL FUMARATE\HYDROCHLOROTHIAZIDE
     Indication: HYPERTENSION
     Dosage: 5 MG BISO AND 12.5 MG HCTZ
     Route: 048
     Dates: end: 201504
  4. METFORMIN [Suspect]
     Active Substance: METFORMIN HYDROCHLORIDE
     Indication: TYPE 2 DIABETES MELLITUS
     Dosage: 1350 MG, QD
     Route: 048
     Dates: start: 201502, end: 20150404
  5. TIMOPTIC [Concomitant]
     Active Substance: TIMOLOL MALEATE
     Indication: CATARACT OPERATION
     Dosage: 1 GTT, QD
     Route: 065
     Dates: start: 20150217
  6. DIPIPERON [Suspect]
     Active Substance: PIPAMPERONE
     Indication: PRODUCT USED FOR UNKNOWN INDICATION
     Dosage: 20 MG, QD
     Route: 065
     Dates: end: 2015

REACTIONS (5)
  - Night sweats [Recovering/Resolving]
  - Decreased appetite [Recovering/Resolving]
  - Liver disorder [Recovering/Resolving]
  - Jaundice cholestatic [Recovering/Resolving]
  - Hepatomegaly [Recovering/Resolving]

NARRATIVE: CASE EVENT DATE: 20150404
